FAERS Safety Report 10910247 (Version 1)
Quarter: 2015Q1

REPORT INFORMATION
  Report Type: Spontaneous
  Country: US (occurrence: US)
  Receive Date: 20150312
  Receipt Date: 20150312
  Transmission Date: 20150721
  Serious: No
  Sender: FDA-Public Use
  Company Number: US-SA-2014SA150158

PATIENT
  Age: 88 Year
  Sex: Male

DRUGS (2)
  1. NASACORT ALLERGY 24HR [Suspect]
     Active Substance: TRIAMCINOLONE ACETONIDE
     Indication: UPPER-AIRWAY COUGH SYNDROME
     Dosage: PRODUCT START DATE:WEEK TO TEN DAYS AGO?DOSAGE:55 MCG/ SPRAY?FREQUENCY:2SPR EACH NOSTRIL QD
     Route: 045
     Dates: end: 20141028
  2. FLUTICASONE [Concomitant]
     Active Substance: FLUTICASONE\FLUTICASONE PROPIONATE
     Indication: UPPER-AIRWAY COUGH SYNDROME
     Dosage: PRODUCT START DATE:THREE DAYS AGO
     Route: 065

REACTIONS (1)
  - Drug ineffective [Unknown]
